FAERS Safety Report 9026630 (Version 2)
Quarter: 2013Q1

REPORT INFORMATION
  Report Type: Spontaneous
  Country: ES (occurrence: None)
  Receive Date: 20130104
  Receipt Date: 20130313
  Transmission Date: 20140127
  Serious: Yes (Life-Threatening)
  Sender: FDA-Public Use
  Company Number: 2013034339

PATIENT
  Age: 57 Year
  Sex: Male

DRUGS (6)
  1. RIASTAP [Suspect]
     Indication: PROCEDURAL HAEMORRHAGE
     Dosage: FOLLOW-UP INFO OF EXACT DOSAGE: 3 GR ?IV,  (NOT OTHERWISE SPECIFIED)?
     Route: 042
     Dates: start: 20121125, end: 20121125
  2. ANTIVIRALS FOR SYSTEMIC USE (ANTIVIRALS FOR SYSTEMIC USE) [Concomitant]
  3. NADOLOL [Concomitant]
  4. SPIRONOLACTONE [Concomitant]
  5. TACROLIMUS [Concomitant]
  6. MYCOPHENOLATE MOFETIL [Concomitant]

REACTIONS (3)
  - Hepatic artery thrombosis [None]
  - Graft dysfunction [None]
  - Renal failure acute [None]
